FAERS Safety Report 25050945 (Version 1)
Quarter: 2025Q1

REPORT INFORMATION
  Report Type: Spontaneous
  Country: JP (occurrence: JP)
  Receive Date: 20250307
  Receipt Date: 20250307
  Transmission Date: 20250409
  Serious: Yes (Other)
  Sender: PFIZER
  Company Number: JP-PFIZER INC-PV202500026039

PATIENT
  Age: 11 Year
  Sex: Female

DRUGS (1)
  1. INOTUZUMAB OZOGAMICIN [Suspect]
     Active Substance: INOTUZUMAB OZOGAMICIN
     Indication: Acute lymphocytic leukaemia recurrent

REACTIONS (2)
  - Venoocclusive liver disease [Not Recovered/Not Resolved]
  - Varices oesophageal [Unknown]
